FAERS Safety Report 5800839-1 (Version None)
Quarter: 2008Q3

REPORT INFORMATION
  Report Type: 
  Country: None (occurrence: None)
  Receive Date: 20080701
  Receipt Date: 20080618
  Transmission Date: 20090109
  Serious: Yes (Other)
  Sender: FDA-Public Use
  Company Number: 2008AL007630

PATIENT
  Age: 74 Year
  Sex: Female

DRUGS (5)
  1. AMLODIPINE BESYLATE [Suspect]
     Indication: HYPERTENSION
     Dosage: 5 MG; QD; PO
     Route: 048
     Dates: start: 20071101, end: 20080104
  2. DIOVAN [Concomitant]
  3. MAREVAN [Concomitant]
  4. KODIPAR [Concomitant]
  5. GLUCOSAMIN [Concomitant]

REACTIONS (10)
  - CONFUSIONAL STATE [None]
  - HALLUCINATION [None]
  - IMPAIRED WORK ABILITY [None]
  - MEMORY IMPAIRMENT [None]
  - NAUSEA [None]
  - OEDEMA PERIPHERAL [None]
  - PAIN IN EXTREMITY [None]
  - PSORIASIS [None]
  - RASH GENERALISED [None]
  - VISION BLURRED [None]
